FAERS Safety Report 8359887-2 (Version None)
Quarter: 2012Q2

REPORT INFORMATION
  Report Type: 
  Country: None (occurrence: None)
  Receive Date: 20120515
  Receipt Date: 20120511
  Transmission Date: 20120825
  Serious: Yes (Hospitalization, Other)
  Sender: FDA-Public Use
  Company Number: US-ASTELLAS-2012US003288

PATIENT
  Sex: Female

DRUGS (4)
  1. ERLOTINIB HYDROCHLORIDE [Suspect]
     Dosage: 150 MG, UNKNOWN/D
     Route: 048
     Dates: start: 20120331
  2. WARFARIN SODIUM [Concomitant]
     Indication: COAGULOPATHY
     Dosage: UNK
     Route: 065
  3. ERLOTINIB HYDROCHLORIDE [Suspect]
     Indication: LUNG CARCINOMA CELL TYPE UNSPECIFIED STAGE IV
     Dosage: 150 MG, UNKNOWN/D
     Route: 048
     Dates: start: 20120307, end: 20120301
  4. FLUIDS [Suspect]
     Indication: PRODUCT USED FOR UNKNOWN INDICATION
     Dosage: UNK
     Route: 042

REACTIONS (4)
  - SEPSIS [None]
  - RESPIRATORY FAILURE [None]
  - PLEURAL EFFUSION [None]
  - URINARY TRACT INFECTION PSEUDOMONAL [None]
